FAERS Safety Report 5501027-9 (Version None)
Quarter: 2007Q4

REPORT INFORMATION
  Report Type: 
  Country: None (occurrence: None)
  Receive Date: 20071029
  Receipt Date: 20071019
  Transmission Date: 20080405
  Serious: Yes (Other)
  Sender: FDA-Public Use
  Company Number: PHBS2007CH17466

PATIENT
  Sex: Male

DRUGS (2)
  1. ZOMETA [Suspect]
     Indication: METASTASES TO BONE
     Dosage: 4 MG/MONTH
     Dates: start: 20070101
  2. PALLADON [Concomitant]
     Dates: start: 20070904

REACTIONS (4)
  - IMPAIRED HEALING [None]
  - MOUTH ULCERATION [None]
  - MUCOSAL ULCERATION [None]
  - TOOTH LOSS [None]
